FAERS Safety Report 13433069 (Version 1)
Quarter: 2017Q2

REPORT INFORMATION
  Report Type: Spontaneous
  Country: CN (occurrence: CN)
  Receive Date: 20170412
  Receipt Date: 20170412
  Transmission Date: 20170830
  Serious: Yes (Hospitalization, Other)
  Sender: FDA-Public Use
  Company Number: CN-PFIZER INC-2017156920

PATIENT
  Age: 51 Year
  Sex: Male
  Weight: 61 kg

DRUGS (1)
  1. CELEBREX [Suspect]
     Active Substance: CELECOXIB
     Indication: ANALGESIC THERAPY
     Dosage: 0.2 G, 2X/DAY
     Route: 048
     Dates: start: 20170210, end: 20170210

REACTIONS (1)
  - Flushing [Recovering/Resolving]

NARRATIVE: CASE EVENT DATE: 20170210
